FAERS Safety Report 4888055-1 (Version None)
Quarter: 2006Q1

REPORT INFORMATION
  Report Type: 
  Country: None (occurrence: None)
  Receive Date: 20060123
  Receipt Date: 20051005
  Transmission Date: 20060701
  Serious: Yes (Hospitalization)
  Sender: FDA-Public Use
  Company Number: US-MERCK-0510USA05501

PATIENT
  Age: 69 Year
  Sex: Male
  Weight: 91 kg

DRUGS (2)
  1. VIOXX [Suspect]
     Indication: ARTHRITIS
     Route: 048
     Dates: end: 20030201
  2. RANITIDINE [Concomitant]
     Route: 065

REACTIONS (7)
  - CHEST PAIN [None]
  - COLONIC POLYP [None]
  - CORONARY ARTERY DISEASE [None]
  - DIVERTICULUM [None]
  - GASTROINTESTINAL HAEMORRHAGE [None]
  - HIATUS HERNIA [None]
  - IRON DEFICIENCY ANAEMIA [None]
